FAERS Safety Report 12533255 (Version 1)
Quarter: 2016Q3

REPORT INFORMATION
  Report Type: Spontaneous
  Country: US (occurrence: US)
  Receive Date: 20160706
  Receipt Date: 20160706
  Transmission Date: 20161109
  Serious: No
  Sender: FDA-Public Use
  Company Number: US-PURDUE-USA-2015-0127917

PATIENT
  Age: 54 Year
  Sex: Female

DRUGS (2)
  1. BUTRANS [Suspect]
     Active Substance: BUPRENORPHINE
     Indication: BONE PAIN
     Dosage: 20 MCG/HR, WEEKLY
     Route: 062
     Dates: start: 20050107
  2. BUTRANS [Suspect]
     Active Substance: BUPRENORPHINE
     Indication: LYME DISEASE

REACTIONS (2)
  - Application site pruritus [Not Recovered/Not Resolved]
  - Application site rash [Not Recovered/Not Resolved]

NARRATIVE: CASE EVENT DATE: 20151116
